FAERS Safety Report 6701952-7 (Version None)
Quarter: 2010Q2

REPORT INFORMATION
  Report Type: 
  Country: None (occurrence: None)
  Receive Date: 20100429
  Receipt Date: 20100426
  Transmission Date: 20101027
  Serious: Yes (Death, Life-Threatening)
  Sender: FDA-Public Use
  Company Number: GR-ROCHE-696574

PATIENT
  Age: 60 Year
  Sex: Female

DRUGS (6)
  1. MIRCERA [Suspect]
     Route: 065
     Dates: start: 20100218, end: 20100407
  2. NEORECORMON [Suspect]
     Route: 065
  3. LEVOCARNITINE [Concomitant]
     Indication: HAEMODIALYSIS
     Dosage: DRUG REPORTED: LEVOCARNITINE/INTELECTA AMP.
     Dates: start: 20080101
  4. NEUROBION [Concomitant]
     Indication: HAEMODIALYSIS
     Dosage: DRUG REPORTED: VITAMINS B1+B6+B12/NEUROBION AMP.
     Dates: start: 20080101
  5. CILROTON [Concomitant]
     Dosage: DRUG REPORTED: DOMPERIDONE/CIRLOTON.
     Dates: start: 20100201
  6. FERINJECT [Concomitant]
     Dates: start: 20100101

REACTIONS (2)
  - APLASIA PURE RED CELL [None]
  - DEATH [None]
